FAERS Safety Report 7804209-6 (Version None)
Quarter: 2011Q4

REPORT INFORMATION
  Report Type: 
  Country: None (occurrence: None)
  Receive Date: 20111010
  Receipt Date: 20111003
  Transmission Date: 20120403
  Serious: Yes (Hospitalization)
  Sender: FDA-Public Use
  Company Number: US-B.I. PHARMACEUTICALS,INC./RIDGEFIELD-2011-BP-23358BP

PATIENT
  Sex: Female

DRUGS (7)
  1. DIGOXIN [Concomitant]
     Indication: ATRIAL FIBRILLATION
     Dosage: 0.125 MG
     Route: 048
     Dates: start: 20060101
  2. ASPIRIN [Concomitant]
     Indication: PROPHYLAXIS
     Dosage: 81 MG
     Route: 048
     Dates: start: 20060101
  3. REMERON [Concomitant]
     Indication: ANXIETY
     Dates: start: 20100901
  4. PRADAXA [Suspect]
     Indication: ATRIAL FIBRILLATION
     Dosage: 300 MG
     Route: 048
     Dates: start: 20101101
  5. RANITIDINE [Concomitant]
     Indication: IMPAIRED GASTRIC EMPTYING
     Dosage: 150 MG
     Route: 048
     Dates: start: 20100901
  6. SENNA -S [Concomitant]
     Indication: CONSTIPATION
     Route: 048
     Dates: start: 20100901
  7. SINEMET [Concomitant]
     Indication: PARKINSON'S DISEASE
     Route: 048
     Dates: start: 20030101

REACTIONS (2)
  - DEMENTIA [None]
  - URINARY TRACT INFECTION [None]
